FAERS Safety Report 14238391 (Version 2)
Quarter: 2017Q4

REPORT INFORMATION
  Report Type: Spontaneous
  Country: US (occurrence: US)
  Receive Date: 20171130
  Receipt Date: 20171205
  Transmission Date: 20180321
  Serious: Yes (Other)
  Sender: FDA-Public Use
  Company Number: US-PFIZER INC-2017512444

PATIENT
  Age: 44 Year
  Sex: Male
  Weight: 98 kg

DRUGS (2)
  1. ATROPINE SULFATE/DIPHENOXYLATE HYDROCHLORIDE [Suspect]
     Active Substance: ATROPINE SULFATE\DIPHENOXYLATE HYDROCHLORIDE
     Indication: DIARRHOEA
     Dosage: ONE TABLET (0.025MG/ 2.5 MG), TWICE A DAY
     Route: 048
     Dates: start: 201511, end: 201710
  2. ATROPINE SULFATE/DIPHENOXYLATE HYDROCHLORIDE [Suspect]
     Active Substance: ATROPINE SULFATE\DIPHENOXYLATE HYDROCHLORIDE
     Dosage: ONE TABLET (0.025MG/ 2.5 MG), TWICE A DAY
     Route: 048
     Dates: end: 201711

REACTIONS (8)
  - Hypokalaemia [Recovered/Resolved]
  - Drug ineffective [Unknown]
  - Product use issue [None]
  - Blood magnesium decreased [None]
  - Faeces hard [Unknown]
  - Drug dose omission [None]
  - Blood calcium decreased [None]
  - Bone marrow transplant [None]

NARRATIVE: CASE EVENT DATE: 20171127
